FAERS Safety Report 8596080 (Version 4)
Quarter: 2016Q1

REPORT INFORMATION
  Report Type: Spontaneous
  Country: US (occurrence: US)
  Receive Date: 20120605
  Receipt Date: 20160308
  Transmission Date: 20160526
  Serious: Yes (Hospitalization, Disabling, Other)
  Sender: FDA-Public Use
  Company Number: US-BAYER-2012-054840

PATIENT
  Age: 40 Year
  Sex: Female
  Weight: 113.38 kg

DRUGS (19)
  1. PREDNISONE. [Concomitant]
     Active Substance: PREDNISONE
     Dosage: 60 MG, UNK
     Route: 048
     Dates: start: 20110909
  2. FROVA [Concomitant]
     Active Substance: FROVATRIPTAN SUCCINATE
     Dosage: 2.5 MG, ONSET OF MIGRAINE
     Route: 048
     Dates: start: 20110915
  3. SINGULAIR [Concomitant]
     Active Substance: MONTELUKAST SODIUM
     Dosage: 10 MG, BEDTIME
     Route: 048
     Dates: start: 20110915
  4. VICODIN [Concomitant]
     Active Substance: ACETAMINOPHEN\HYDROCODONE BITARTRATE
     Dosage: 5/500MG EVERY 6 HOURS AS NEEDED
     Route: 048
     Dates: start: 20110915
  5. ZONISAMIDE. [Concomitant]
     Active Substance: ZONISAMIDE
     Dosage: 50 MG, BID
     Route: 048
     Dates: start: 20110915
  6. TORADOL [Concomitant]
     Active Substance: KETOROLAC TROMETHAMINE
  7. SERTRALINE [Concomitant]
     Active Substance: SERTRALINE HYDROCHLORIDE
     Indication: ANXIETY
     Dosage: 25 MG, TABS. 1.5 TAB DAILY
     Route: 048
     Dates: start: 20110915
  8. ORPHENADRINE CITRATE. [Concomitant]
     Active Substance: ORPHENADRINE CITRATE
     Indication: PAIN
     Dosage: 100 MG, EVERY 12 HOURS
     Route: 048
     Dates: start: 20110915
  9. PROAIR HFA [Concomitant]
     Active Substance: ALBUTEROL SULFATE
     Dosage: 90 ?G, INHALATION
     Dates: start: 20110915
  10. YAZ [Suspect]
     Active Substance: DROSPIRENONE\ETHINYL ESTRADIOL
     Dosage: UNK
     Dates: start: 201002, end: 201111
  11. FLEXERIL [Concomitant]
     Active Substance: CYCLOBENZAPRINE HYDROCHLORIDE
     Dosage: 10 MG, TID IF NEEDED
     Route: 048
     Dates: start: 20110915
  12. FLUTICASONE [Concomitant]
     Active Substance: FLUTICASONE\FLUTICASONE PROPIONATE
     Dosage: 50 ?G, UNK
     Route: 045
     Dates: start: 20110915
  13. HYDROCHLOROTHIAZIDE. [Concomitant]
     Active Substance: HYDROCHLOROTHIAZIDE
     Dosage: 25 MG, DAILY
     Route: 048
     Dates: start: 20110915
  14. NABUMETONE. [Concomitant]
     Active Substance: NABUMETONE
     Indication: MIGRAINE
     Dosage: 750 MG, EVERY 10-12 HOURS IF NEEDED
     Route: 048
     Dates: start: 20110915
  15. POTASSIUM CHLORIDE. [Concomitant]
     Active Substance: POTASSIUM CHLORIDE
     Dosage: 20 MEQ, DAILY
     Route: 048
     Dates: start: 20110915
  16. PROPRANOLOL [Concomitant]
     Active Substance: PROPRANOLOL\PROPRANOLOL HYDROCHLORIDE
     Dosage: 60 MG, BID
     Route: 048
     Dates: start: 20110915
  17. FUROSEMIDE. [Concomitant]
     Active Substance: FUROSEMIDE
     Dosage: 40 MG, UNK
     Route: 048
     Dates: start: 20110915
  18. TIZANIDINE. [Concomitant]
     Active Substance: TIZANIDINE
     Dosage: 4 MG, BEDTIME
     Route: 048
     Dates: start: 20110915
  19. MORPHINE [Concomitant]
     Active Substance: MORPHINE

REACTIONS (11)
  - Pain [None]
  - Peripheral artery thrombosis [None]
  - Embolism arterial [None]
  - General physical health deterioration [None]
  - Deep vein thrombosis [None]
  - Emotional distress [None]
  - Anxiety [None]
  - Leg amputation [None]
  - Deep vein thrombosis [None]
  - Anhedonia [None]
  - Fear [None]

NARRATIVE: CASE EVENT DATE: 201109
